FAERS Safety Report 5023224-1 (Version None)
Quarter: 2006Q2

REPORT INFORMATION
  Report Type: 
  Country: None (occurrence: None)
  Receive Date: 20060428
  Receipt Date: 20060109
  Transmission Date: 20061013
  Serious: No
  Sender: FDA-Public Use
  Company Number: 012025

PATIENT
  Age: 72 Year
  Sex: Male

DRUGS (25)
  1. PRIALT [Suspect]
     Indication: PAIN
     Dosage: SEE IMAGE
     Route: 037
     Dates: start: 20050921, end: 20050928
  2. PRIALT [Suspect]
     Indication: PAIN
     Dosage: SEE IMAGE
     Route: 037
     Dates: start: 20050928, end: 20051007
  3. PRIALT [Suspect]
     Indication: PAIN
     Dosage: SEE IMAGE
     Route: 037
     Dates: start: 20051007, end: 20060103
  4. PRIALT [Suspect]
     Indication: PAIN
     Dosage: SEE IMAGE
     Route: 037
     Dates: start: 20060103
  5. DILAUDID [Concomitant]
  6. METHADONE HCL [Concomitant]
  7. LYRICA [Concomitant]
  8. MORPHINE [Concomitant]
  9. BUPIVACAINE [Concomitant]
  10. NEURONTIN [Concomitant]
  11. CLONAZEPAM [Concomitant]
  12. PROSCAR [Concomitant]
  13. PROBENECID [Concomitant]
  14. COLCHICUM JTL LIQ [Concomitant]
  15. PROZAC [Concomitant]
  16. ADVIL [Concomitant]
  17. SENNA PLUS (SENNA ALEXANDRINA) [Concomitant]
  18. STOOL SOFTENER (DOCUSATE SODIUM) [Concomitant]
  19. ASCORBIC ACID [Concomitant]
  20. CRANBERRY (VACCINIUM MACROCARPON) [Concomitant]
  21. SELENIUM (SELENIUM) [Concomitant]
  22. SAW PALMETTO (SERENOA REPENS) [Concomitant]
  23. CHONDROITIN SULFATE (CHONDROITIN SULFATE) [Concomitant]
  24. GLUCOSAMINE SULFATE (GLUCOSAMINE SULFATE) [Concomitant]
  25. METHYLSULFONYLMETHANE (METHYLSULFONYLMETHANE) [Concomitant]

REACTIONS (5)
  - BALANCE DISORDER [None]
  - DIZZINESS POSTURAL [None]
  - OEDEMA PERIPHERAL [None]
  - PAIN [None]
  - THERAPEUTIC RESPONSE UNEXPECTED [None]
